FAERS Safety Report 5858882-2 (Version None)
Quarter: 2008Q3

REPORT INFORMATION
  Report Type: 
  Country: None (occurrence: None)
  Receive Date: 20080825
  Receipt Date: 20080812
  Transmission Date: 20090109
  Serious: Yes (Life-Threatening, Hospitalization, Other)
  Sender: FDA-Public Use
  Company Number: 2008AL008549

PATIENT
  Age: 87 Year
  Sex: Female
  Weight: 72.5755 kg

DRUGS (7)
  1. DIGOXIN [Suspect]
     Indication: ATRIAL FIBRILLATION
     Dosage: 0.125MG DAILY PO
     Route: 048
     Dates: start: 20080318, end: 20080422
  2. COUMADIN [Suspect]
  3. DIOVAN [Concomitant]
  4. ASPIRIN [Concomitant]
  5. MULTI-VITAMINS [Concomitant]
  6. LEXAPRO [Concomitant]
  7. TYLENOL (CAPLET) [Concomitant]

REACTIONS (3)
  - DRUG INTERACTION [None]
  - HAEMORRHAGE [None]
  - HERPES ZOSTER [None]
